FAERS Safety Report 14277613 (Version 7)
Quarter: 2019Q4

REPORT INFORMATION
  Report Type: Spontaneous
  Country: US (occurrence: US)
  Receive Date: 20171212
  Receipt Date: 20191226
  Transmission Date: 20200122
  Serious: Yes (Other)
  Sender: FDA-Public Use
  Company Number: US-AMGEN-USASP2017182924

PATIENT
  Age: 71 Year
  Sex: Male

DRUGS (1)
  1. ENBREL [Suspect]
     Active Substance: ETANERCEPT
     Indication: RHEUMATOID ARTHRITIS
     Dosage: UNK (SELF INJECTED PEN UNKNOWN DOSE)
     Route: 065
     Dates: start: 200811, end: 200901

REACTIONS (3)
  - Drug hypersensitivity [Unknown]
  - Pneumonia [Recovered/Resolved]
  - Drug ineffective [Unknown]
